FAERS Safety Report 9280382 (Version 3)
Quarter: 2013Q1

REPORT INFORMATION
  Report Type: Spontaneous
  Country: RO (occurrence: None)
  Receive Date: 20130131
  Receipt Date: 20130320
  Transmission Date: 20140127
  Serious: Yes (Life-Threatening)
  Sender: FDA-Public Use
  Company Number: 220197

PATIENT
  Age: 60 Year
  Sex: Male

DRUGS (1)
  1. INNOHEP [Suspect]
     Indication: HAEMODIALYSIS
     Dosage: 4000 IU
     Dates: start: 20130118

REACTIONS (2)
  - Anaphylactic shock [None]
  - Loss of consciousness [None]
